FAERS Safety Report 23598358 (Version 2)
Quarter: 2024Q1

REPORT INFORMATION
  Report Type: Report from Study
  Country: US (occurrence: US)
  Receive Date: 20240305
  Receipt Date: 20240315
  Transmission Date: 20240409
  Serious: Yes (Hospitalization, Other)
  Sender: FDA-Public Use
  Company Number: US-ARGENX-2023-ARGX-US003473

PATIENT

DRUGS (3)
  1. VYVGART [Suspect]
     Active Substance: EFGARTIGIMOD ALFA-FCAB
     Indication: Myasthenia gravis
     Dosage: 10 MG/KG, ONCE WEEKLY FOR 4 WEEK, STRENGTH: 400MG/20ML
     Route: 042
     Dates: start: 20230809
  2. VYVGART [Suspect]
     Active Substance: EFGARTIGIMOD ALFA-FCAB
     Dosage: RESTARTED
     Route: 065
  3. PREDNISONE [Suspect]
     Active Substance: PREDNISONE
     Indication: Myasthenia gravis
     Dosage: 10 MG, DAILY
     Route: 065
     Dates: start: 20240108

REACTIONS (15)
  - Myasthenia gravis crisis [Unknown]
  - Choking [Not Recovered/Not Resolved]
  - Dysarthria [Not Recovered/Not Resolved]
  - Dyskinesia [Not Recovered/Not Resolved]
  - Dysphagia [Not Recovered/Not Resolved]
  - Eyelid ptosis [Unknown]
  - Diplopia [Unknown]
  - Fatigue [Unknown]
  - Fatigue [Unknown]
  - Asthenia [Unknown]
  - Upper respiratory tract infection [Unknown]
  - Therapeutic product effect incomplete [Unknown]
  - Influenza [Recovering/Resolving]
  - Myasthenia gravis [Recovered/Resolved]
  - Upper respiratory tract infection [Recovered/Resolved]

NARRATIVE: CASE EVENT DATE: 20231001
